FAERS Safety Report 7657401-8 (Version None)
Quarter: 2011Q3

REPORT INFORMATION
  Report Type: 
  Country: None (occurrence: None)
  Receive Date: 20110804
  Receipt Date: 20110718
  Transmission Date: 20111222
  Serious: Yes (Hospitalization, Other)
  Sender: FDA-Public Use
  Company Number: BR-ASTRAZENECA-2010SE57594

PATIENT
  Age: 30 Year
  Sex: Female
  Weight: 73 kg

DRUGS (16)
  1. METOPROLOL SUCCINATE [Suspect]
     Route: 048
     Dates: start: 20091201
  2. SLOW-K [Concomitant]
     Route: 048
     Dates: start: 20080101
  3. ATENOLOL [Suspect]
     Route: 048
     Dates: start: 20070101, end: 20090601
  4. METOPROLOL SUCCINATE [Suspect]
     Route: 048
     Dates: start: 20090901, end: 20091201
  5. METOPROLOL SUCCINATE [Suspect]
     Route: 048
     Dates: start: 20090901, end: 20091201
  6. METOPROLOL SUCCINATE [Suspect]
     Indication: ARRHYTHMIA
     Route: 048
     Dates: start: 20090601, end: 20090901
  7. METOPROLOL SUCCINATE [Suspect]
     Indication: MITRAL VALVE DISEASE
     Route: 048
     Dates: start: 20090601, end: 20090901
  8. METOPROLOL SUCCINATE [Suspect]
     Route: 048
  9. FUROSEMIDE [Suspect]
     Route: 048
     Dates: start: 20040101
  10. DIGOXIN [Suspect]
     Route: 048
     Dates: start: 20080101
  11. WARFARIN SODIUM [Concomitant]
     Route: 048
     Dates: start: 20080101, end: 20100101
  12. ATENOLOL [Suspect]
     Indication: ARRHYTHMIA
     Route: 048
     Dates: start: 20040101
  13. ATENOLOL [Suspect]
     Route: 048
     Dates: start: 20070101, end: 20090601
  14. METOPROLOL SUCCINATE [Suspect]
     Route: 048
     Dates: start: 20091201
  15. METOPROLOL SUCCINATE [Suspect]
     Route: 048
  16. ATENOLOL [Suspect]
     Indication: MITRAL VALVE DISEASE
     Route: 048
     Dates: start: 20040101

REACTIONS (9)
  - HEART VALVE REPLACEMENT [None]
  - RHEUMATIC FEVER [None]
  - DYSPNOEA [None]
  - MATERNAL EXPOSURE DURING PREGNANCY [None]
  - MITRAL VALVE DISEASE [None]
  - HEART VALVE STENOSIS [None]
  - HEART RATE DECREASED [None]
  - FATIGUE [None]
  - HEART RATE INCREASED [None]
